FAERS Safety Report 9897282 (Version 1)
Quarter: 2014Q1

REPORT INFORMATION
  Report Type: Spontaneous
  Country: US (occurrence: US)
  Receive Date: 20140214
  Receipt Date: 20140214
  Transmission Date: 20141002
  Serious: Yes (Hospitalization, Other)
  Sender: FDA-Public Use
  Company Number: US-CELGENEUS-163-POMAL-14021735

PATIENT
  Sex: Male

DRUGS (1)
  1. POMALYST [Suspect]
     Indication: PLASMA CELL LEUKAEMIA
     Dosage: 4 MILLIGRAM
     Route: 048
     Dates: start: 20140120

REACTIONS (2)
  - Fall [Unknown]
  - Full blood count decreased [Unknown]
